FAERS Safety Report 7798149-9 (Version None)
Quarter: 2011Q4

REPORT INFORMATION
  Report Type: 
  Country: None (occurrence: None)
  Receive Date: 20111004
  Receipt Date: 20110920
  Transmission Date: 20120403
  Serious: Yes (Death, Other)
  Sender: FDA-Public Use
  Company Number: DE-2011-1830

PATIENT
  Age: 64 Year
  Sex: Male

DRUGS (3)
  1. NAVELBINE [Suspect]
     Indication: NON-SMALL CELL LUNG CANCER
     Dosage: 20 MG/M2  IV
     Route: 042
     Dates: start: 20051124, end: 20051201
  2. PACLITAXEL [Suspect]
     Indication: NON-SMALL CELL LUNG CANCER
     Dosage: 175 MG/M2 QD IV
     Route: 042
     Dates: start: 20050907, end: 20051019
  3. CISPLATIN [Suspect]
     Indication: NON-SMALL CELL LUNG CANCER
     Dosage: 50 MG/M2 QD IV
     Route: 042
     Dates: start: 20050907, end: 20051201

REACTIONS (11)
  - METASTASES TO CENTRAL NERVOUS SYSTEM [None]
  - HYPERNATRAEMIA [None]
  - MENTAL DISORDER DUE TO A GENERAL MEDICAL CONDITION [None]
  - DEMYELINATION [None]
  - LUNG ABSCESS [None]
  - EMPYEMA [None]
  - METASTASES TO ADRENALS [None]
  - CARDIAC FAILURE [None]
  - BRONCHOPNEUMONIA [None]
  - PLEURISY [None]
  - DEPRESSION [None]
